FAERS Safety Report 15991514 (Version 1)
Quarter: 2019Q1

REPORT INFORMATION
  Report Type: Spontaneous
  Country: GB (occurrence: GB)
  Receive Date: 20190221
  Receipt Date: 20190221
  Transmission Date: 20190418
  Serious: Yes (Life-Threatening, Hospitalization)
  Sender: FDA-Public Use
  Company Number: PHHY2019GB040772

PATIENT
  Age: 50 Year
  Sex: Male

DRUGS (1)
  1. SECUKINUMAB. [Suspect]
     Active Substance: SECUKINUMAB
     Indication: PSORIATIC ARTHROPATHY
     Dosage: 300 MG ONCE A WEEK, WEEK ZERO, ONE, TWO, THREE, FOUR, THEN MONTHLY
     Route: 058

REACTIONS (2)
  - Respiratory failure [Unknown]
  - Alveolitis [Recovering/Resolving]

NARRATIVE: CASE EVENT DATE: 20180626
